FAERS Safety Report 8249774-2 (Version None)
Quarter: 2012Q1

REPORT INFORMATION
  Report Type: 
  Country: None (occurrence: None)
  Receive Date: 20120328
  Receipt Date: 20120320
  Transmission Date: 20120608
  Serious: Yes (Death)
  Sender: FDA-Public Use
  Company Number: TPA2012A01555

PATIENT
  Age: 77 Year
  Sex: Male
  Weight: 68.0396 kg

DRUGS (6)
  1. UROXATRAL [Concomitant]
  2. CIPROFLOXACIN [Concomitant]
  3. ACTOS [Suspect]
     Indication: TYPE 2 DIABETES MELLITUS
     Dosage: 30 MG, 1 IN 1 D, PER ORAL
     Route: 048
  4. FOSINOPRIL / HCTZ (HYDROCHLOROTHIAZIDE, FOSINOPRIL SODIUM) [Concomitant]
  5. NEXIUM [Concomitant]
  6. SIMVASTATIN [Concomitant]

REACTIONS (1)
  - BLADDER CANCER [None]
